FAERS Safety Report 8053677-6 (Version None)
Quarter: 2012Q1

REPORT INFORMATION
  Report Type: 
  Country: None (occurrence: None)
  Receive Date: 20120118
  Receipt Date: 20120110
  Transmission Date: 20120608
  Serious: Yes (Other)
  Sender: FDA-Public Use
  Company Number: PHHY2012ZA002254

PATIENT
  Age: 16 Year
  Sex: Female

DRUGS (3)
  1. CITALOPRAM HYDROBROMIDE [Suspect]
     Dosage: 10 MG, UNK
  2. METHYLPHENIDATE [Suspect]
     Dosage: UNK
  3. MARIJUANA [Suspect]
     Dosage: UNK

REACTIONS (7)
  - PERSECUTORY DELUSION [None]
  - DEPRESSED MOOD [None]
  - SCHIZOAFFECTIVE DISORDER BIPOLAR TYPE [None]
  - BISEXUALITY [None]
  - PSYCHOTIC DISORDER [None]
  - PSYCHOMOTOR HYPERACTIVITY [None]
  - HALLUCINATION, AUDITORY [None]
